FAERS Safety Report 23610806 (Version 1)
Quarter: 2024Q1

REPORT INFORMATION
  Report Type: Report from Study
  Country: CA (occurrence: CA)
  Receive Date: 20240308
  Receipt Date: 20240308
  Transmission Date: 20240410
  Serious: Yes (Other)
  Sender: FDA-Public Use
  Company Number: CA-PUMA BIOTECHNOLOGY, LTD.-2023-PUM-CA002149

PATIENT

DRUGS (7)
  1. NERLYNX [Suspect]
     Active Substance: NERATINIB
     Indication: HER2 positive breast cancer
     Dosage: 120 MG, DAILY
     Route: 048
     Dates: start: 20231122, end: 20231128
  2. NERLYNX [Suspect]
     Active Substance: NERATINIB
     Dosage: 160 MG, DAILY
     Route: 048
     Dates: start: 20231129
  3. NERLYNX [Suspect]
     Active Substance: NERATINIB
     Dosage: 240 MG, DAILY
     Route: 048
  4. LOPERAMIDE HYDROCHLORIDE [Concomitant]
     Active Substance: LOPERAMIDE HYDROCHLORIDE
     Indication: Prophylaxis against diarrhoea
     Dosage: UNK
     Route: 065
     Dates: start: 20231122
  5. EDOXABAN TOSYLATE [Concomitant]
     Active Substance: EDOXABAN TOSYLATE
     Indication: Product used for unknown indication
  6. BISOPROLOL [Concomitant]
     Active Substance: BISOPROLOL\BISOPROLOL FUMARATE
     Indication: Product used for unknown indication
  7. VITAMIN D2 [Concomitant]
     Active Substance: ERGOCALCIFEROL
     Indication: Product used for unknown indication

REACTIONS (2)
  - Skin cancer [Not Recovered/Not Resolved]
  - Abdominal pain upper [Unknown]

NARRATIVE: CASE EVENT DATE: 20231122
